FAERS Safety Report 11674982 (Version 2)
Quarter: 2015Q4

REPORT INFORMATION
  Report Type: Report from Study
  Country: US (occurrence: None)
  Receive Date: 20151028
  Receipt Date: 20151104
  Transmission Date: 20160304
  Serious: Yes (Hospitalization, Other)
  Sender: FDA-Public Use
  Company Number: US-MDT-ADR-2015-02035

PATIENT
  Age: 64 Year
  Sex: Female

DRUGS (2)
  1. COMPOUNDED BACLOFEN INTRATHECAL 2000 MCG/ML [Suspect]
     Active Substance: BACLOFEN
     Indication: MUSCLE SPASTICITY
     Dosage: 199.9 MCG/DAY
  2. FENTANYL INTRATHECAL 125 MCG/ML [Suspect]
     Active Substance: FENTANYL
     Dosage: 12.49 MCG/DAY

REACTIONS (1)
  - Asthenia [None]
